FAERS Safety Report 20070690 (Version 1)
Quarter: 2021Q4

REPORT INFORMATION
  Report Type: Spontaneous
  Country: US (occurrence: None)
  Receive Date: 20211115
  Receipt Date: 20211115
  Transmission Date: 20220303
  Serious: Yes (Other)
  Sender: FDA-Public Use
  Company Number: None

PATIENT
  Age: 35 Year
  Sex: Female
  Weight: 85 kg

DRUGS (1)
  1. CASIRIVIMAB\IMDEVIMAB [Suspect]
     Active Substance: CASIRIVIMAB\IMDEVIMAB
     Indication: COVID-19
     Dosage: FREQUENCY : ONCE;?
     Route: 041
     Dates: start: 20211109, end: 20211109

REACTIONS (7)
  - Infusion related reaction [None]
  - Paraesthesia [None]
  - Back pain [None]
  - Abdominal pain upper [None]
  - Dyspnoea [None]
  - Erythema [None]
  - Blood urine present [None]

NARRATIVE: CASE EVENT DATE: 20211109
